FAERS Safety Report 5537822-X (Version None)
Quarter: 2007Q4

REPORT INFORMATION
  Report Type: 
  Country: None (occurrence: None)
  Receive Date: 20071120
  Receipt Date: 20070820
  Transmission Date: 20080405
  Serious: No
  Sender: FDA-Public Use
  Company Number: WAES 0708USA03583

PATIENT
  Sex: Female

DRUGS (7)
  1. JANUVIA [Suspect]
     Indication: TYPE 2 DIABETES MELLITUS
     Dosage: 100 MG/DAILY/PO
     Route: 048
     Dates: start: 20070816
  2. GEODON [Concomitant]
  3. THERAPY UNSPECIFIED [Concomitant]
  4. BENAZEPRIL HYDROCHLORIDE [Concomitant]
  5. BENZTROPINE MESYLATE [Concomitant]
  6. GLIMEPIRIDE [Concomitant]
  7. GLIPIZIDE [Concomitant]

REACTIONS (2)
  - HYPOGLYCAEMIA [None]
  - PHARYNGEAL OEDEMA [None]
